FAERS Safety Report 10261963 (Version 4)
Quarter: 2014Q3

REPORT INFORMATION
  Report Type: Spontaneous
  Country: FR (occurrence: FR)
  Receive Date: 20140626
  Receipt Date: 20140903
  Transmission Date: 20150326
  Serious: Yes (Death, Hospitalization, Other)
  Sender: FDA-Public Use
  Company Number: FR-INCYTE CORPORATION-2014IN001700

PATIENT
  Age: 60 Year
  Sex: Female
  Weight: 61 kg

DRUGS (7)
  1. OGAST [Concomitant]
     Active Substance: LANSOPRAZOLE
     Indication: GASTRITIS
     Dosage: UNK UKN, UNK
  2. LEXOMIL [Concomitant]
     Active Substance: BROMAZEPAM
     Dosage: 0.5 DF, TID
  3. FLOXYFRAL [Concomitant]
     Active Substance: FLUVOXAMINE
     Indication: DEPRESSION
     Dosage: UNK UKN, UNK
  4. JAKAFI [Suspect]
     Active Substance: RUXOLITINIB
     Indication: MYELOFIBROSIS
     Dosage: 15 MG, BID
     Route: 048
     Dates: start: 20140222
  5. MESTINON [Concomitant]
     Active Substance: PYRIDOSTIGMINE BROMIDE
     Indication: MUSCULAR WEAKNESS
     Dosage: 60 MG AT 9:30 AM, 60 MG AT 3:30 PM AND 80 MG AT 9:30 PM
  6. TAREG [Concomitant]
     Active Substance: VALSARTAN
     Indication: HYPERTENSION
     Dosage: 80 MG, UNK
  7. KARDEGIC [Concomitant]
     Active Substance: ASPIRIN LYSINE
     Indication: POLYCYTHAEMIA VERA
     Dosage: 75 MG, UNK

REACTIONS (18)
  - Thoracic vertebral fracture [Fatal]
  - Second primary malignancy [Unknown]
  - Spinal cord neoplasm [Unknown]
  - Osteonecrosis [Unknown]
  - Multi-organ failure [Unknown]
  - Lymphadenopathy [Unknown]
  - Pyrexia [Unknown]
  - Respiratory failure [Unknown]
  - Shock [Unknown]
  - Lung neoplasm [Unknown]
  - Sepsis [Unknown]
  - Paraplegia [Fatal]
  - B-cell lymphoma [Fatal]
  - Infection [Fatal]
  - Hepatocellular injury [Unknown]
  - Malignant neoplasm of spinal cord [Unknown]
  - Cholestasis [Unknown]
  - Inflammation [Unknown]

NARRATIVE: CASE EVENT DATE: 201405
